FAERS Safety Report 11843555 (Version 1)
Quarter: 2015Q4

REPORT INFORMATION
  Report Type: Spontaneous
  Country: US (occurrence: US)
  Receive Date: 20151217
  Receipt Date: 20151217
  Transmission Date: 20160305
  Serious: No
  Sender: FDA-Public Use
  Company Number: US-ASTRAZENECA-2015SF23392

PATIENT
  Sex: Female

DRUGS (1)
  1. BYETTA [Suspect]
     Active Substance: EXENATIDE
     Dosage: 250 MCG / 1.2 ML PEN
     Route: 065

REACTIONS (2)
  - Malaise [Not Recovered/Not Resolved]
  - Drug dose omission [Not Recovered/Not Resolved]
